FAERS Safety Report 10244806 (Version 1)
Quarter: 2014Q2

REPORT INFORMATION
  Report Type: Spontaneous
  Country: KR (occurrence: KR)
  Receive Date: 20140618
  Receipt Date: 20140618
  Transmission Date: 20141212
  Serious: Yes (Hospitalization)
  Sender: FDA-Public Use
  Company Number: KR-WATSON-2014-12837

PATIENT
  Sex: Male

DRUGS (2)
  1. RAPAFLO (ARROW FARMACEUTICA) [Suspect]
     Indication: BENIGN PROSTATIC HYPERPLASIA
     Dosage: UNK
     Route: 048
     Dates: start: 20100930, end: 20101019
  2. PROPIVERINE [Concomitant]
     Indication: HYPERTONIC BLADDER
     Dosage: 20 MG, UNK
     Dates: start: 20100930, end: 20101018

REACTIONS (3)
  - Dyspnoea [Unknown]
  - Anaemia [Unknown]
  - Asthenia [Unknown]
